FAERS Safety Report 8432359-2 (Version None)
Quarter: 2012Q2

REPORT INFORMATION
  Report Type: 
  Country: None (occurrence: None)
  Receive Date: 20120613
  Receipt Date: 20120601
  Transmission Date: 20120825
  Serious: Yes (Hospitalization)
  Sender: FDA-Public Use
  Company Number: US-ELI_LILLY_AND_COMPANY-US201206001267

PATIENT
  Sex: Female

DRUGS (4)
  1. KLOR-CON [Concomitant]
     Dosage: UNK
  2. CALCIUM + VITAMIN D [Concomitant]
     Indication: OSTEOPOROSIS
     Dosage: UNK
  3. FORTEO [Suspect]
     Indication: OSTEOPOROSIS
     Dosage: 20 UG, QD
     Dates: start: 20111001
  4. VITAMIN D [Concomitant]
     Dosage: 1000 MG, UNK

REACTIONS (5)
  - OEDEMA [None]
  - BODY HEIGHT DECREASED [None]
  - ANAEMIA [None]
  - NEPHROLITHIASIS [None]
  - PAIN [None]
